FAERS Safety Report 7290710-3 (Version None)
Quarter: 2011Q1

REPORT INFORMATION
  Report Type: 
  Country: None (occurrence: None)
  Receive Date: 20110214
  Receipt Date: 20110202
  Transmission Date: 20110831
  Serious: Yes (Hospitalization)
  Sender: FDA-Public Use
  Company Number: GB-ROCHE-731595

PATIENT
  Sex: Female
  Weight: 67.4 kg

DRUGS (5)
  1. DOCETAXEL [Suspect]
     Indication: BREAST CANCER
     Dosage: FREQUENCY: DAY 1; LAST DOSE PRIOR TO SAE: 06 SEPTEMBER 2010
     Route: 042
     Dates: start: 20100816, end: 20100906
  2. NEUPOGEN [Suspect]
     Indication: BREAST CANCER
     Route: 065
  3. LENOGRASTIM [Concomitant]
     Dosage: DRUG NAME REPORTED AS: LENOGRASTIN, TDD REPORTED AS: 263
     Dates: start: 20100817, end: 20100823
  4. CAPECITABINE [Suspect]
     Indication: BREAST CANCER
     Dosage: FREQUENCY: DAYS 2-15; LAST DOSE PRIOR TO SAE: 24 AUGUST 2010
     Route: 048
     Dates: start: 20100817, end: 20100906
  5. DOCETAXEL [Suspect]
     Route: 042
     Dates: start: 20100908

REACTIONS (1)
  - PANIC ATTACK [None]
